FAERS Safety Report 4844056-0 (Version None)
Quarter: 2005Q4

REPORT INFORMATION
  Report Type: 
  Country: None (occurrence: None)
  Receive Date: 20051202
  Receipt Date: 20050622
  Transmission Date: 20060501
  Serious: Yes (Other)
  Sender: FDA-Public Use
  Company Number: US-ROCHE-408743

PATIENT
  Sex: Female
  Weight: 3.2 kg

DRUGS (8)
  1. ACCUTANE [Suspect]
     Indication: ACNE
     Dates: start: 19970615, end: 19980615
  2. YASMIN [Concomitant]
  3. FLONASE [Concomitant]
     Dates: end: 20041019
  4. NEXIUM [Concomitant]
  5. ASACOL [Concomitant]
     Dosage: REPORTED TO BE TAKING THIS MEDICATION ON 13 DECEMBER 2004
  6. VITAMIN [Concomitant]
  7. PRILOSEC [Concomitant]
  8. ZANTAC [Concomitant]
     Dosage: REPORTED TO BE TAKING THIS MEDICATION ON 13 DECEMBER 2004 CLARIFIED AS ZANTAC 150

REACTIONS (10)
  - AMNIOTIC FLUID VOLUME DECREASED [None]
  - BETA HAEMOLYTIC STREPTOCOCCAL INFECTION [None]
  - CAESAREAN SECTION [None]
  - CANDIDIASIS [None]
  - CHORIOAMNIONITIS [None]
  - DRUG EXPOSURE DURING PREGNANCY [None]
  - NORMAL NEWBORN [None]
  - PLACENTAL DISORDER [None]
  - POSTOPERATIVE WOUND INFECTION [None]
  - PREGNANCY [None]
